FAERS Safety Report 8288475-1 (Version None)
Quarter: 2012Q2

REPORT INFORMATION
  Report Type: 
  Country: None (occurrence: None)
  Receive Date: 20120416
  Receipt Date: 20120402
  Transmission Date: 20120825
  Serious: Yes (Death, Other)
  Sender: FDA-Public Use
  Company Number: PT-BAXTER-2012BH004696

PATIENT
  Sex: Male

DRUGS (2)
  1. EXTRANEAL [Suspect]
     Route: 033
  2. EXTRANEAL [Suspect]
     Route: 033

REACTIONS (2)
  - DEATH [None]
  - PERITONITIS BACTERIAL [None]
